FAERS Safety Report 10876943 (Version 4)
Quarter: 2015Q3

REPORT INFORMATION
  Report Type: Other
  Country: GB (occurrence: GB)
  Receive Date: 20150302
  Receipt Date: 20150821
  Transmission Date: 20151125
  Serious: Yes (Death, Hospitalization)
  Sender: FDA-Public Use
  Company Number: GB-LUPIN PHARMACEUTICALS INC.-E2B_00003224

PATIENT
  Age: 58 Year
  Sex: Male
  Weight: 100 kg

DRUGS (7)
  1. DOXAZOSIN MESILATE [Suspect]
     Active Substance: DOXAZOSIN MESYLATE
     Route: 065
     Dates: end: 2014
  2. DOXAZOSIN MESILATE [Suspect]
     Active Substance: DOXAZOSIN MESYLATE
     Indication: HYPERTENSION
     Route: 065
     Dates: start: 2002
  3. LISINOPRIL. [Suspect]
     Active Substance: LISINOPRIL
     Indication: HYPERTENSION
     Route: 065
     Dates: start: 2002, end: 20141126
  4. BECONASE AQ [Concomitant]
     Active Substance: BECLOMETHASONE DIPROPIONATE MONOHYDRATE
     Indication: CATARRH
     Route: 065
  5. AMLODIPINE BESILATE [Suspect]
     Active Substance: AMLODIPINE BESYLATE
     Indication: HYPERTENSION
     Route: 048
     Dates: start: 20140922
  6. BECONASE AQ [Concomitant]
     Active Substance: BECLOMETHASONE DIPROPIONATE MONOHYDRATE
     Indication: INFLUENZA LIKE ILLNESS
     Route: 065
     Dates: start: 201405
  7. BECONASE AQ [Concomitant]
     Active Substance: BECLOMETHASONE DIPROPIONATE MONOHYDRATE
     Indication: NASOPHARYNGITIS
     Route: 065

REACTIONS (24)
  - Hyponatraemia [Unknown]
  - Gait disturbance [Unknown]
  - Lower respiratory tract infection [Unknown]
  - Hypertensive heart disease [Fatal]
  - Coronary artery disease [Unknown]
  - Dysarthria [Unknown]
  - Asthenia [Unknown]
  - Multifocal motor neuropathy [Unknown]
  - Blood urine present [Unknown]
  - Cardiac failure acute [Unknown]
  - Anaemia [Unknown]
  - Hypokalaemia [Unknown]
  - Muscle atrophy [Unknown]
  - Weight decreased [Unknown]
  - Myocardial ischaemia [Fatal]
  - Confusional state [Unknown]
  - Dyspnoea [Unknown]
  - Cardiac failure acute [Unknown]
  - Muscle spasms [Unknown]
  - Fatigue [Unknown]
  - Muscular weakness [Unknown]
  - Muscle atrophy [Unknown]
  - Cardiac failure congestive [Fatal]
  - Dyspnoea [Unknown]

NARRATIVE: CASE EVENT DATE: 2009
